FAERS Safety Report 10541567 (Version 6)
Quarter: 2019Q1

REPORT INFORMATION
  Report Type: Report from Study
  Country: US (occurrence: US)
  Receive Date: 20141024
  Receipt Date: 20190329
  Transmission Date: 20190417
  Serious: Yes (Hospitalization, Other)
  Sender: FDA-Public Use
  Company Number: US-SA-2014SA142584

PATIENT
  Age: 55 Year
  Sex: Female

DRUGS (2)
  1. TERIFLUNOMIDE. [Suspect]
     Active Substance: TERIFLUNOMIDE
     Indication: MULTIPLE SCLEROSIS
     Dosage: 7 MG,QD
     Route: 048
     Dates: start: 20141001
  2. TERIFLUNOMIDE. [Suspect]
     Active Substance: TERIFLUNOMIDE
     Dosage: 14 MG, QD
     Dates: start: 20141008, end: 2017

REACTIONS (19)
  - Confusional state [Unknown]
  - Memory impairment [Unknown]
  - Liver function test abnormal [Unknown]
  - Alanine aminotransferase increased [Recovering/Resolving]
  - Urinary tract infection [Recovering/Resolving]
  - Hypertension [Unknown]
  - Faeces soft [Unknown]
  - Headache [Unknown]
  - Diarrhoea [Recovered/Resolved]
  - Incontinence [Recovering/Resolving]
  - Cognitive disorder [Unknown]
  - Hepatic enzyme increased [Not Recovered/Not Resolved]
  - Chills [Unknown]
  - Vomiting [Recovered/Resolved]
  - Hyperhidrosis [Unknown]
  - Nausea [Recovered/Resolved]
  - Muscle spasms [Unknown]
  - Abdominal distension [Unknown]
  - Chromaturia [Unknown]

NARRATIVE: CASE EVENT DATE: 201410
